FAERS Safety Report 4743138-1 (Version None)
Quarter: 2005Q3

REPORT INFORMATION
  Report Type: 
  Country: None (occurrence: None)
  Receive Date: 20050811
  Receipt Date: 20050331
  Transmission Date: 20060218
  Serious: Yes (Hospitalization, Other)
  Sender: FDA-Public Use
  Company Number: US-MERCK-0504USA00231

PATIENT
  Age: 62 Year
  Sex: Male
  Weight: 77 kg

DRUGS (10)
  1. VIOXX [Suspect]
     Indication: PAIN
     Route: 048
     Dates: start: 20000201, end: 20031001
  2. OXYCODONE [Concomitant]
     Route: 065
  3. LORAZEPAM [Concomitant]
     Route: 065
  4. WELLBUTRIN [Concomitant]
     Route: 065
  5. NABUMETONE [Concomitant]
     Route: 065
  6. PREDNISONE [Concomitant]
     Route: 065
  7. BIAXIN [Concomitant]
     Route: 065
  8. CEPHALEXIN [Concomitant]
     Route: 065
  9. [THERAPY UNSPECIFIED] [Concomitant]
     Route: 065
  10. PROPOXYPHENE NAPSYLATE [Concomitant]
     Route: 065

REACTIONS (5)
  - BLOOD CHOLESTEROL INCREASED [None]
  - CEREBROVASCULAR ACCIDENT [None]
  - MYOCARDIAL INFARCTION [None]
  - POLYTRAUMATISM [None]
  - THROMBOSIS [None]
